FAERS Safety Report 9219024 (Version 1)
Quarter: 2013Q2

REPORT INFORMATION
  Report Type: Spontaneous
  Country: US (occurrence: None)
  Receive Date: 20130405
  Receipt Date: 20130405
  Transmission Date: 20140414
  Serious: Yes (Other)
  Sender: FDA-Public Use
  Company Number: None

PATIENT
  Age: 43 Year
  Sex: Female

DRUGS (1)
  1. ENBREL 50 MG [Suspect]
     Dosage: 50 MG QW SQ
     Route: 058
     Dates: start: 20110714, end: 20130106

REACTIONS (1)
  - Colon cancer [None]
